FAERS Safety Report 24524079 (Version 2)
Quarter: 2025Q1

REPORT INFORMATION
  Report Type: Spontaneous
  Country: US (occurrence: US)
  Receive Date: 20241018
  Receipt Date: 20250222
  Transmission Date: 20250408
  Serious: No
  Sender: SANOFI AVENTIS
  Company Number: US-SA-2024SA299865

PATIENT
  Age: 42 Year
  Sex: Female

DRUGS (21)
  1. DUPIXENT [Suspect]
     Active Substance: DUPILUMAB
     Indication: Dermatitis atopic
     Dosage: 300 MG, QOW
     Route: 058
     Dates: start: 20210205
  2. ALBUTEROL [Concomitant]
     Active Substance: ALBUTEROL
  3. ALPRAZOLAM [Concomitant]
     Active Substance: ALPRAZOLAM
  4. BREO ELLIPTA [Concomitant]
     Active Substance: FLUTICASONE FUROATE\VILANTEROL TRIFENATATE
  5. BUPROPION HYDROCHLORIDE [Concomitant]
     Active Substance: BUPROPION HYDROCHLORIDE
  6. BUPROPION HYDROCHLORIDE [Concomitant]
     Active Substance: BUPROPION HYDROCHLORIDE
  7. CALCIPOTRIENE [Concomitant]
     Active Substance: CALCIPOTRIENE
  8. CLOBETASOL [Concomitant]
     Active Substance: CLOBETASOL
  9. DULOXETINE [Concomitant]
     Active Substance: DULOXETINE
  10. FLUOCINONIDE [Concomitant]
     Active Substance: FLUOCINONIDE
  11. FLUTICASONE [Concomitant]
     Active Substance: FLUTICASONE
  12. MONTELUKAST [Concomitant]
     Active Substance: MONTELUKAST
  13. NUVARING [Concomitant]
     Active Substance: ETHINYL ESTRADIOL\ETONOGESTREL
  14. RAMIPRIL [Concomitant]
     Active Substance: RAMIPRIL
  15. RAMIPRIL [Concomitant]
     Active Substance: RAMIPRIL
  16. RIZATRIPTAN [Concomitant]
     Active Substance: RIZATRIPTAN
  17. SAXENDA [Concomitant]
     Active Substance: LIRAGLUTIDE
  18. SPIRONOLACTONE [Concomitant]
     Active Substance: SPIRONOLACTONE
  19. VITAMIN E [Concomitant]
     Active Substance: .ALPHA.-TOCOPHEROL
  20. AMILORIDE HCL W/ HYDROCHLOROTHIAZIDE [Concomitant]
     Active Substance: AMILORIDE HYDROCHLORIDE\HYDROCHLOROTHIAZIDE
  21. ELURYNG [Concomitant]
     Active Substance: ETHINYL ESTRADIOL\ETONOGESTREL

REACTIONS (9)
  - Fatigue [Not Recovered/Not Resolved]
  - Alopecia [Not Recovered/Not Resolved]
  - Skin irritation [Not Recovered/Not Resolved]
  - Headache [Not Recovered/Not Resolved]
  - Therapeutic response decreased [Unknown]
  - Dermatitis atopic [Unknown]
  - Discomfort [Unknown]
  - Rash [Not Recovered/Not Resolved]
  - Sleep disorder due to a general medical condition [Not Recovered/Not Resolved]

NARRATIVE: CASE EVENT DATE: 20240101
